FAERS Safety Report 18595821 (Version 1)
Quarter: 2020Q4

REPORT INFORMATION
  Report Type: Spontaneous
  Country: US (occurrence: US)
  Receive Date: 20201209
  Receipt Date: 20201209
  Transmission Date: 20210114
  Serious: Yes (Other)
  Sender: FDA-Public Use
  Company Number: US-EYEVANCE PHARMACEUTICALS-2020EYE00311

PATIENT
  Age: 69 Year
  Sex: Female

DRUGS (3)
  1. NATACYN [Suspect]
     Active Substance: NATAMYCIN
     Dosage: 1 DROP, EVERY 2 HOURS
     Route: 047
     Dates: start: 2020, end: 2020
  2. NATACYN [Suspect]
     Active Substance: NATAMYCIN
     Indication: EYE ULCER
     Dosage: 5 %, 3X/DAY
     Dates: start: 20200116, end: 2020
  3. NATACYN [Suspect]
     Active Substance: NATAMYCIN
     Dosage: 1 DROP, 1X/DAY
     Route: 047
     Dates: start: 2020

REACTIONS (3)
  - Product physical consistency issue [Unknown]
  - Condition aggravated [Unknown]
  - Eye swelling [Unknown]

NARRATIVE: CASE EVENT DATE: 2020
